FAERS Safety Report 7368726-8 (Version None)
Quarter: 2011Q1

REPORT INFORMATION
  Report Type: 
  Country: None (occurrence: None)
  Receive Date: 20110323
  Receipt Date: 20100723
  Transmission Date: 20110831
  Serious: Yes (Hospitalization, Other)
  Sender: FDA-Public Use
  Company Number: US-BAYER-201018673NA

PATIENT
  Sex: Female
  Weight: 126.98 kg

DRUGS (14)
  1. ZAPONEX [Concomitant]
     Indication: DYSPNOEA
     Dosage: UNK UNK, QD
  2. PROZAC [Concomitant]
  3. YASMIN [Suspect]
     Indication: MENSTRUAL CYCLE MANAGEMENT
     Dosage: UNK
     Route: 048
     Dates: start: 20070130, end: 20080208
  4. YASMIN [Suspect]
     Indication: ENDOMETRIOSIS
  5. PREVACID [Concomitant]
  6. PULMICORT [Concomitant]
     Indication: ASTHMA
     Dosage: UNK UNK, QD
  7. ZOLPIDEM [Concomitant]
     Indication: SLEEP DISORDER
     Dosage: UNK UNK, QD
  8. SYNTHROID [Concomitant]
     Indication: HYPOTHYROIDISM
     Dosage: UNK UNK, QD
  9. PREDNISONE [Concomitant]
     Indication: DYSPNOEA
     Dosage: 80 MG, QD
  10. CYMBALTA [Concomitant]
     Indication: DEPRESSION
     Dosage: UNK UNK, QD
  11. THEOPHYLLINE [Concomitant]
     Indication: DYSPNOEA
     Dosage: UNK UNK, QD
  12. XANAX [Concomitant]
     Indication: STRESS
     Dosage: UNK UNK, QD
  13. SINGULAIR [Concomitant]
     Indication: ASTHMA
     Dosage: UNK UNK, QD
  14. ADVAIR DISKUS 100/50 [Concomitant]
     Indication: ASTHMA
     Dosage: UNK UNK, QD

REACTIONS (7)
  - PAIN [None]
  - DEEP VEIN THROMBOSIS [None]
  - MENTAL DISORDER [None]
  - DYSPNOEA [None]
  - PULMONARY EMBOLISM [None]
  - PAIN IN EXTREMITY [None]
  - CHEST PAIN [None]
